FAERS Safety Report 21108717 (Version 1)
Quarter: 2022Q3

REPORT INFORMATION
  Report Type: Spontaneous
  Country: FR (occurrence: FR)
  Receive Date: 20220721
  Receipt Date: 20220721
  Transmission Date: 20221027
  Serious: Yes (Death, Hospitalization)
  Sender: FDA-Public Use
  Company Number: None

PATIENT
  Age: 76 Year
  Sex: Male
  Weight: 92 kg

DRUGS (6)
  1. CLOPIDOGREL HYDROCHLORIDE [Suspect]
     Active Substance: CLOPIDOGREL HYDROCHLORIDE
     Indication: Product used for unknown indication
     Dosage: CLOPIDOGREL (CHLORHYDRATE DE)
     Route: 065
  2. COMIRNATY [Suspect]
     Active Substance: TOZINAMERAN
     Indication: COVID-19 immunisation
     Dosage: R2 ,30 MICROGRAMS/DOSE, . MRNA (MODIFIED NUCLEOSIDE) VACCINE AGAINST COVID-19 , UNIT DOSE : 1 DF , F
     Dates: start: 20220615, end: 20220615
  3. EZETIMIBE [Concomitant]
     Active Substance: EZETIMIBE
     Indication: Product used for unknown indication
     Dosage: FORM STRENGTH : 10 MG
  4. PERINDOPRIL [Concomitant]
     Active Substance: PERINDOPRIL
     Indication: Product used for unknown indication
     Dosage: GENERIC , FORM STRENGTH :8 MG
  5. FLUDEX [Concomitant]
     Indication: Product used for unknown indication
     Dosage: FORM STRENGTH : 1.5 MG , PROLONGED-RELEASE FILM-COATED TABLET
  6. BISOPROLOL FUMARATE [Concomitant]
     Active Substance: BISOPROLOL FUMARATE
     Indication: Product used for unknown indication
     Dosage: FORM STRENGTH : 1.25 MG

REACTIONS (2)
  - Haemorrhagic stroke [Fatal]
  - Asthenia [Recovered/Resolved]

NARRATIVE: CASE EVENT DATE: 20220615
